FAERS Safety Report 14206536 (Version 3)
Quarter: 2019Q3

REPORT INFORMATION
  Report Type: Spontaneous
  Country: US (occurrence: US)
  Receive Date: 20171120
  Receipt Date: 20190923
  Transmission Date: 20191004
  Serious: Yes (Other)
  Sender: FDA-Public Use
  Company Number: US-CELGENEUS-USA-20171104715

PATIENT
  Age: 57 Year
  Sex: Male

DRUGS (6)
  1. TRIAMCINOLONE [Concomitant]
     Active Substance: TRIAMCINOLONE
     Indication: PRURITUS
     Dosage: .2 PERCENT
     Route: 061
     Dates: start: 20151118
  2. BETAMETHASONE DIPROPIONATE. [Concomitant]
     Active Substance: BETAMETHASONE DIPROPIONATE
     Indication: PRURITUS
     Dosage: .5 PERCENT
     Route: 061
     Dates: start: 20170607
  3. REVLIMID [Suspect]
     Active Substance: LENALIDOMIDE
     Indication: CUTANEOUS T-CELL LYMPHOMA
     Dosage: 10 MILLIGRAM
     Route: 048
     Dates: start: 20170607
  4. HYDROCORTISONE. [Concomitant]
     Active Substance: HYDROCORTISONE
     Indication: PRURITUS
     Dosage: 7.5 PERCENT
     Route: 061
     Dates: start: 20150916
  5. HYDROXYZINE HYDROCHLORIDE. [Concomitant]
     Active Substance: HYDROXYZINE HYDROCHLORIDE
     Indication: PRURITUS
     Dosage: 25 MILLIGRAM
     Route: 048
     Dates: start: 20160203
  6. DURVALUMAB. [Concomitant]
     Active Substance: DURVALUMAB
     Indication: CUTANEOUS T-CELL LYMPHOMA
     Dosage: 1500 MILLIGRAM
     Route: 041
     Dates: start: 20170607

REACTIONS (1)
  - Squamous cell carcinoma of skin [Recovered/Resolved]

NARRATIVE: CASE EVENT DATE: 20170927
